FAERS Safety Report 4745806-4 (Version None)
Quarter: 2005Q3

REPORT INFORMATION
  Report Type: 
  Country: None (occurrence: None)
  Receive Date: 20050815
  Receipt Date: 20050815
  Transmission Date: 20060218
  Serious: Yes (Hospitalization)
  Sender: FDA-Public Use
  Company Number: None

PATIENT
  Age: 48 Year
  Sex: Female

DRUGS (7)
  1. CARBAMAZEPINE [Suspect]
     Indication: GRAND MAL CONVULSION
     Dosage: 400MG   DAILY  ORAL
     Route: 048
     Dates: start: 20020102, end: 20040508
  2. LEVETIRACETAM [Concomitant]
  3. DEPAKOTE [Concomitant]
  4. ASPIRIN [Concomitant]
  5. LIPITOR [Concomitant]
  6. PROTONIX [Concomitant]
  7. WARFARIN SODIUM [Concomitant]

REACTIONS (4)
  - DIFFICULTY IN WALKING [None]
  - DIPLOPIA [None]
  - DRUG TOXICITY [None]
  - NYSTAGMUS [None]
